FAERS Safety Report 5598348-0 (Version None)
Quarter: 2008Q1

REPORT INFORMATION
  Report Type: 
  Country: None (occurrence: None)
  Receive Date: 20080122
  Receipt Date: 20080116
  Transmission Date: 20080703
  Serious: Yes (Hospitalization)
  Sender: FDA-Public Use
  Company Number: NL-AVENTIS-200810598GDDC

PATIENT
  Age: 37 Year
  Sex: Female

DRUGS (2)
  1. TELFAST                            /01314201/ [Suspect]
  2. ALLERGEN EXTRACTS [Suspect]
     Route: 060
     Dates: start: 20060901

REACTIONS (4)
  - BRADYCARDIA [None]
  - DYSPNOEA EXERTIONAL [None]
  - OEDEMA PERIPHERAL [None]
  - WEIGHT INCREASED [None]
